FAERS Safety Report 24389802 (Version 2)
Quarter: 2025Q1

REPORT INFORMATION
  Report Type: Report from Study
  Country: US (occurrence: US)
  Receive Date: 20241003
  Receipt Date: 20250123
  Transmission Date: 20250408
  Serious: Yes (Hospitalization)
  Sender: Unknown Manufacturer
  Company Number: US-MIRUM PHARMACEUTICALS, INC.-US-MIR-24-00871

PATIENT

DRUGS (1)
  1. LIVMARLI [Suspect]
     Active Substance: MARALIXIBAT CHLORIDE
     Indication: Bilirubin excretion disorder
     Dosage: 2 UNK, QD
     Route: 065
     Dates: start: 202406

REACTIONS (4)
  - Hepatic function abnormal [Unknown]
  - Haematemesis [Unknown]
  - Transplant evaluation [Unknown]
  - Off label use [Unknown]

NARRATIVE: CASE EVENT DATE: 20240917
